FAERS Safety Report 10060650 (Version 2)
Quarter: 2014Q2

REPORT INFORMATION
  Report Type: Spontaneous
  Country: JP (occurrence: JP)
  Receive Date: 20140404
  Receipt Date: 20140423
  Transmission Date: 20141212
  Serious: Yes (Death, Hospitalization, Other)
  Sender: FDA-Public Use
  Company Number: JP-ELI_LILLY_AND_COMPANY-JP201403010156

PATIENT
  Age: 64 Year
  Sex: Female

DRUGS (2)
  1. GEMZAR [Suspect]
     Indication: PANCREATIC CARCINOMA
     Dosage: 1600 MG, UNK
     Route: 042
     Dates: start: 20120925, end: 20121010
  2. ALOXI [Concomitant]
     Indication: PROPHYLAXIS
     Dosage: 0.75 MG, UNK
     Route: 042
     Dates: start: 20120925, end: 20121010

REACTIONS (7)
  - Guillain-Barre syndrome [Fatal]
  - Cholecystitis [Unknown]
  - Disseminated intravascular coagulation [Unknown]
  - Pyrexia [Not Recovered/Not Resolved]
  - Malaise [Not Recovered/Not Resolved]
  - Platelet count decreased [Recovered/Resolved]
  - Drug eruption [Recovered/Resolved]
